FAERS Safety Report 13401403 (Version 2)
Quarter: 2017Q2

REPORT INFORMATION
  Report Type: Report from Study
  Country: SE (occurrence: SE)
  Receive Date: 20170404
  Receipt Date: 20170421
  Transmission Date: 20170830
  Serious: Yes (Other)
  Sender: FDA-Public Use
  Company Number: SE-BAYER-2017-057415

PATIENT
  Age: 47 Year
  Sex: Female

DRUGS (1)
  1. MIRENA [Suspect]
     Active Substance: LEVONORGESTREL
     Dosage: 20 MCG/24HR, CONT
     Route: 015
     Dates: start: 20170228, end: 20170228

REACTIONS (7)
  - Uterine spasm [None]
  - Neuralgia [None]
  - Blood pressure decreased [None]
  - Complication of device insertion [None]
  - Procedural pain [None]
  - Procedural nausea [None]
  - Pallor [None]

NARRATIVE: CASE EVENT DATE: 20170228
